FAERS Safety Report 8337226-0 (Version None)
Quarter: 2012Q2

REPORT INFORMATION
  Report Type: 
  Country: None (occurrence: None)
  Receive Date: 20120504
  Receipt Date: 20120425
  Transmission Date: 20120825
  Serious: Yes (Hospitalization)
  Sender: FDA-Public Use
  Company Number: IT-NOVOPROD-349625

PATIENT
  Age: 83 Year
  Sex: Female

DRUGS (3)
  1. LEVOTHYROXINE SODIUM [Concomitant]
     Dosage: 1 TAB, BID
  2. NOVOMIX 30 FLEXPEN [Suspect]
     Indication: DIABETES MELLITUS
     Dosage: 12 U, QD
     Route: 058
     Dates: start: 20080101
  3. NOVORAPID FLEXPEN [Suspect]
     Indication: DIABETES MELLITUS
     Dosage: 28 U, QD
     Route: 058
     Dates: start: 20080101

REACTIONS (3)
  - HYPERHIDROSIS [None]
  - BRADYPHRENIA [None]
  - HYPOGLYCAEMIA [None]
